FAERS Safety Report 17247389 (Version 1)
Quarter: 2019Q4

REPORT INFORMATION
  Report Type: Spontaneous
  Country: US (occurrence: US)
  Receive Date: 20191213
  Receipt Date: 20191213
  Transmission Date: 20200122
  Serious: No
  Sender: FDA-Public Use
  Company Number: None

PATIENT
  Age: 56 Year
  Sex: Female

DRUGS (1)
  1. TACROLIMUS 1MG STRIDES PHARMA [Suspect]
     Active Substance: TACROLIMUS
     Indication: END STAGE RENAL DISEASE
     Dosage: ?          OTHER FREQUENCY:3 IN AM + 2 IN PM;?
     Route: 048
     Dates: start: 20191112

REACTIONS (1)
  - Alopecia [None]

NARRATIVE: CASE EVENT DATE: 20191112
